FAERS Safety Report 12836425 (Version 1)
Quarter: 2016Q4

REPORT INFORMATION
  Report Type: Report from Study
  Country: US (occurrence: US)
  Receive Date: 20161011
  Receipt Date: 20161011
  Transmission Date: 20170207
  Serious: Yes (Other)
  Sender: FDA-Public Use
  Company Number: US-PFIZER INC-2016468219

PATIENT
  Age: 45 Year
  Sex: Male

DRUGS (5)
  1. NITROGLYCERIN. [Suspect]
     Active Substance: NITROGLYCERIN
     Dosage: (10 UG/MIN)
     Route: 041
  2. NITROGLYCERIN. [Suspect]
     Active Substance: NITROGLYCERIN
     Dosage: (36.5 UG/MIN OVER THE NEXT THIRTY MIN)
     Route: 041
  3. NITROGLYCERIN. [Suspect]
     Active Substance: NITROGLYCERIN
     Dosage: (GRADUALLY INCREASED OVER THE NEXT 25 MINUTES TO 56.5 UG/MIN)
     Route: 041
  4. NITROGLYCERIN. [Suspect]
     Active Substance: NITROGLYCERIN
     Indication: HYPERTENSION
     Dosage: (5 UG/MIN)
     Route: 041
  5. NITROGLYCERIN. [Suspect]
     Active Substance: NITROGLYCERIN
     Dosage: (36.5 UG/MIN)
     Route: 041

REACTIONS (3)
  - Sinus bradycardia [Recovered/Resolved]
  - Pulmonary arterial pressure decreased [Recovered/Resolved]
  - Hypotension [Recovered/Resolved]
